FAERS Safety Report 9264810 (Version 1)
Quarter: 2013Q2

REPORT INFORMATION
  Report Type: Spontaneous
  Country: US (occurrence: None)
  Receive Date: 20130426
  Receipt Date: 20130426
  Transmission Date: 20140414
  Serious: Yes (Hospitalization)
  Sender: FDA-Public Use
  Company Number: 2011000190

PATIENT
  Age: 72 Year
  Sex: Female
  Weight: 99 kg

DRUGS (2)
  1. TARCEVA (ERLOTINIB HYDROCHLORIDE) TABLET [Suspect]
     Indication: ADENOCARCINOMA PANCREAS
     Route: 048
     Dates: start: 20121020
  2. GEMCITABINE (GEMCITABINE) [Suspect]
     Indication: ADENOCARCINOMA PANCREAS
     Route: 042
     Dates: start: 20101020

REACTIONS (13)
  - Anaemia [None]
  - Fatigue [None]
  - Decreased appetite [None]
  - Weight decreased [None]
  - Rash maculo-papular [None]
  - Dehydration [None]
  - Chills [None]
  - White blood cell count decreased [None]
  - Neutrophil count decreased [None]
  - Asthenia [None]
  - Dyspnoea exertional [None]
  - Haematochezia [None]
  - Toxicity to various agents [None]
